FAERS Safety Report 15482897 (Version 1)
Quarter: 2018Q4

REPORT INFORMATION
  Report Type: Spontaneous
  Country: US (occurrence: US)
  Receive Date: 20181003
  Receipt Date: 20181003
  Transmission Date: 20190205
  Serious: No
  Sender: FDA-Public Use
  Company Number: None

PATIENT
  Age: 63 Year
  Sex: Male
  Weight: 90 kg

DRUGS (7)
  1. OLMESARTAN MEDOXOMIL 20 MG/D [Concomitant]
  2. METOPROLOL SUCCINATE ER 50 MG/D [Concomitant]
  3. ELIQUIS [Suspect]
     Active Substance: APIXABAN
     Indication: ATRIAL FIBRILLATION
     Dosage: ?          QUANTITY:1 TABLET(S);?
     Route: 048
     Dates: start: 20160530, end: 20180701
  4. XARELTO, 20 MG/D [Concomitant]
  5. MULTIVITAMIN DAILY [Concomitant]
  6. NSAID OCCASIONAL [Concomitant]
  7. ATOVASTATIN, 20 MG/D [Concomitant]

REACTIONS (3)
  - Soft tissue inflammation [None]
  - Peripheral swelling [None]
  - Cellulitis [None]

NARRATIVE: CASE EVENT DATE: 20170530
